FAERS Safety Report 25902328 (Version 2)
Quarter: 2025Q4

REPORT INFORMATION
  Report Type: Spontaneous
  Country: EU (occurrence: EU)
  Receive Date: 20251009
  Receipt Date: 20251118
  Transmission Date: 20260117
  Serious: Yes (Other)
  Sender: INCYTE
  Company Number: EU-INCYTE CORPORATION-2025IN010948

PATIENT
  Age: 84 Year

DRUGS (3)
  1. TAFASITAMAB [Suspect]
     Active Substance: TAFASITAMAB
     Indication: Diffuse large B-cell lymphoma
     Dosage: UNK
     Route: 065
  2. TAFASITAMAB [Suspect]
     Active Substance: TAFASITAMAB
     Dosage: UNK Q2W
     Route: 065
  3. LENALIDOMIDE [Suspect]
     Active Substance: LENALIDOMIDE
     Indication: Diffuse large B-cell lymphoma
     Dosage: UNK
     Route: 065

REACTIONS (5)
  - Atrial fibrillation [Unknown]
  - Cardiac failure [Unknown]
  - Respiratory tract infection [Unknown]
  - Anaemia [Unknown]
  - Rash [Unknown]
